FAERS Safety Report 5343983-8 (Version None)
Quarter: 2007Q2

REPORT INFORMATION
  Report Type: 
  Country: None (occurrence: None)
  Receive Date: 20070604
  Receipt Date: 20070530
  Transmission Date: 20071010
  Serious: Yes (Other)
  Sender: FDA-Public Use
  Company Number: JP-AVENTIS-200711411JP

PATIENT
  Age: 33 Year
  Sex: Male

DRUGS (1)
  1. DAONIL [Suspect]

REACTIONS (1)
  - APLASTIC ANAEMIA [None]
